FAERS Safety Report 22677229 (Version 2)
Quarter: 2025Q2

REPORT INFORMATION
  Report Type: Report from Study
  Country: CA (occurrence: CA)
  Receive Date: 20230706
  Receipt Date: 20250415
  Transmission Date: 20250716
  Serious: Yes (Other)
  Sender: TAKEDA
  Company Number: CA-TAKEDA-2023TUS066030

PATIENT
  Sex: Female

DRUGS (14)
  1. VEDOLIZUMAB [Suspect]
     Active Substance: VEDOLIZUMAB
     Indication: Colitis ulcerative
  2. VEDOLIZUMAB [Suspect]
     Active Substance: VEDOLIZUMAB
     Dosage: 300 MILLIGRAM, Q4WEEKS
     Dates: start: 20220922
  3. VEDOLIZUMAB [Suspect]
     Active Substance: VEDOLIZUMAB
     Dosage: 300 MILLIGRAM, Q4WEEKS
  4. PERINDOPRIL [Concomitant]
     Active Substance: PERINDOPRIL
  5. ESCITALOPRAM [Concomitant]
     Active Substance: ESCITALOPRAM OXALATE
  6. MYRBETRIQ [Concomitant]
     Active Substance: MIRABEGRON
  7. ROSUVASTATIN [Concomitant]
     Active Substance: ROSUVASTATIN
  8. QUETIAPINE [Concomitant]
     Active Substance: QUETIAPINE
  9. Micro k [Concomitant]
  10. Novoferrogluc [Concomitant]
  11. Multi Women [Concomitant]
  12. PRED FORTE [Concomitant]
     Active Substance: PREDNISOLONE ACETATE
     Dosage: UNK UNK, Q2HR
     Dates: start: 20250404
  13. DEXAMETHASONE [Concomitant]
     Active Substance: DEXAMETHASONE
     Route: 061
  14. ATROPINE [Concomitant]
     Active Substance: ATROPINE
     Dosage: UNK UNK, BID
     Dates: start: 20250404

REACTIONS (2)
  - Uveitis [Unknown]
  - Herpes zoster [Unknown]
